FAERS Safety Report 6034798-6 (Version None)
Quarter: 2009Q1

REPORT INFORMATION
  Report Type: 
  Country: None (occurrence: None)
  Receive Date: 20090112
  Receipt Date: 20090105
  Transmission Date: 20090719
  Serious: Yes (Other)
  Sender: FDA-Public Use
  Company Number: US-ELI_LILLY_AND_COMPANY-US200901000369

PATIENT
  Age: 78 Year
  Sex: Female

DRUGS (3)
  1. EVISTA [Suspect]
     Indication: OSTEOPENIA
     Dosage: 60 MG, UNKNOWN
     Route: 065
  2. LOPRESSOR [Concomitant]
     Dosage: UNK, UNKNOWN
     Route: 065
  3. IRON [Concomitant]
     Dosage: UNK, UNKNOWN
     Route: 065

REACTIONS (5)
  - BACK PAIN [None]
  - BLOOD IRON DECREASED [None]
  - COELIAC DISEASE [None]
  - PAIN IN EXTREMITY [None]
  - SURGERY [None]
